FAERS Safety Report 4823301-1 (Version None)
Quarter: 2005Q4

REPORT INFORMATION
  Report Type: 
  Country: None (occurrence: None)
  Receive Date: 20051109
  Receipt Date: 20051031
  Transmission Date: 20060501
  Serious: Yes (Death)
  Sender: FDA-Public Use
  Company Number: US-BOEHRINGER INGELHEIM PHARMACEUTICALS, INC.-2005-DE-04515GD

PATIENT
  Age: 33 Year
  Sex: Female

DRUGS (3)
  1. NEVIRAPINE [Suspect]
     Indication: HIV INFECTION
  2. HAART [Suspect]
     Indication: HIV INFECTION
  3. MEDICINALPRODUCT NOT SPECIFIED BY SENDER [Concomitant]

REACTIONS (8)
  - CAESAREAN SECTION [None]
  - DRUG EXPOSURE DURING PREGNANCY [None]
  - DRUG HYPERSENSITIVITY [None]
  - DRUG TOXICITY [None]
  - HEPATIC FAILURE [None]
  - HEPATIC NECROSIS [None]
  - HEPATIC STEATOSIS [None]
  - RASH MACULAR [None]
